FAERS Safety Report 6463554-X (Version None)
Quarter: 2009Q4

REPORT INFORMATION
  Report Type: 
  Country: None (occurrence: None)
  Receive Date: 20091201
  Receipt Date: 20091118
  Transmission Date: 20100525
  Serious: Yes (Hospitalization)
  Sender: FDA-Public Use
  Company Number: US-ELI_LILLY_AND_COMPANY-US200911005240

PATIENT
  Sex: Female
  Weight: 111.63 kg

DRUGS (18)
  1. GEMCITABINE HCL [Suspect]
     Indication: BREAST CANCER METASTATIC
     Dosage: 1000 MG/M2, UNK
     Route: 042
     Dates: start: 20090313
  2. GEMCITABINE HCL [Suspect]
     Dosage: 600 MG/M2, UNK
     Route: 042
     Dates: end: 20091029
  3. PACLITAXEL [Suspect]
     Indication: BREAST CANCER METASTATIC
     Dosage: 80 MG/M2, UNK
     Route: 042
     Dates: start: 20090313
  4. PACLITAXEL [Suspect]
     Dosage: 60 MG/M2, UNK
     Route: 042
     Dates: end: 20091029
  5. BEVACIZUMAB [Suspect]
     Indication: BREAST CANCER METASTATIC
     Dosage: 10 MG/KG, UNK
     Route: 042
     Dates: start: 20090313, end: 20091029
  6. LYRICA [Concomitant]
     Dosage: 75 MG, 2/D
     Route: 048
  7. PRILOSEC [Concomitant]
     Dosage: 20 MG, DAILY (1/D)
     Route: 048
  8. ROXICODONE [Concomitant]
     Dosage: 5 MG, UNK
     Route: 048
     Dates: end: 20091101
  9. MAXZIDE [Concomitant]
     Dosage: 1 D/F, DAILY (1/D)
     Route: 048
  10. LANTUS [Concomitant]
     Dosage: 25 U, DAILY (1/D)
     Route: 058
  11. HUMALOG [Concomitant]
     Dosage: 11 U, 3/D
     Route: 058
  12. ZOFRAN [Concomitant]
     Indication: NAUSEA
     Dosage: 4 MG, EVERY 8 HRS
  13. COMPAZINE [Concomitant]
     Indication: NAUSEA
     Dosage: 10 MG, EVERY 6 HRS
     Route: 048
  14. DEPAKOTE [Concomitant]
     Dosage: 1000 MG, DAILY (1/D)
     Dates: end: 20091101
  15. SYNTHROID [Concomitant]
     Dosage: 150 UG, DAILY (1/D)
  16. CYTOMEL [Concomitant]
     Dosage: 50 UG, DAILY (1/D)
  17. BUPROPION HCL [Concomitant]
     Dosage: 75 MG, 2/D
     Route: 048
  18. LISINOPRIL [Concomitant]
     Dosage: 10 MG, DAILY (1/D)

REACTIONS (7)
  - ASPARTATE AMINOTRANSFERASE INCREASED [None]
  - ASTHENIA [None]
  - DYSPNOEA [None]
  - OEDEMA PERIPHERAL [None]
  - RENAL FAILURE ACUTE [None]
  - THROMBOCYTOPENIA [None]
  - VIRAL INFECTION [None]
